FAERS Safety Report 20959621 (Version 3)
Quarter: 2025Q1

REPORT INFORMATION
  Report Type: Report from Study
  Country: JP (occurrence: JP)
  Receive Date: 20220614
  Receipt Date: 20250308
  Transmission Date: 20250408
  Serious: Yes (Death, Other)
  Sender: ALEXION PHARMACEUTICALS
  Company Number: 2022A216376

PATIENT
  Age: 73 Year
  Weight: 39 kg

DRUGS (35)
  1. ANIFROLUMAB [Suspect]
     Active Substance: ANIFROLUMAB
     Indication: Systemic lupus erythematosus
  2. ANIFROLUMAB [Suspect]
     Active Substance: ANIFROLUMAB
  3. SARS-CoV-2 vaccine [Concomitant]
     Route: 065
  4. SARS-CoV-2 vaccine [Concomitant]
     Route: 065
  5. SARS-CoV-2 vaccine [Concomitant]
     Route: 065
  6. SARS-CoV-2 vaccine [Concomitant]
     Route: 065
  7. PREDNISOLONE [Concomitant]
     Active Substance: PREDNISOLONE
     Indication: Systemic lupus erythematosus
  8. PREDNISOLONE [Concomitant]
     Active Substance: PREDNISOLONE
  9. PREDNISOLONE [Concomitant]
     Active Substance: PREDNISOLONE
  10. PREDNISOLONE [Concomitant]
     Active Substance: PREDNISOLONE
  11. PREDNISOLONE [Concomitant]
     Active Substance: PREDNISOLONE
  12. PREDNISOLONE [Concomitant]
     Active Substance: PREDNISOLONE
  13. PREDNISOLONE [Concomitant]
     Active Substance: PREDNISOLONE
  14. PREDNISOLONE [Concomitant]
     Active Substance: PREDNISOLONE
  15. PREDNISOLONE [Concomitant]
     Active Substance: PREDNISOLONE
  16. PREDNISOLONE [Concomitant]
     Active Substance: PREDNISOLONE
  17. PREDNISOLONE [Concomitant]
     Active Substance: PREDNISOLONE
  18. PREDNISOLONE [Concomitant]
     Active Substance: PREDNISOLONE
  19. PREDNISOLONE [Concomitant]
     Active Substance: PREDNISOLONE
  20. PREDNISOLONE [Concomitant]
     Active Substance: PREDNISOLONE
  21. PREDNISOLONE [Concomitant]
     Active Substance: PREDNISOLONE
  22. PREDNISOLONE [Concomitant]
     Active Substance: PREDNISOLONE
  23. PREDNISOLONE [Concomitant]
     Active Substance: PREDNISOLONE
  24. PREDNISOLONE [Concomitant]
     Active Substance: PREDNISOLONE
  25. PREDNISOLONE [Concomitant]
     Active Substance: PREDNISOLONE
  26. PREDNISOLONE [Concomitant]
     Active Substance: PREDNISOLONE
  27. PREDNISOLONE [Concomitant]
     Active Substance: PREDNISOLONE
  28. PREDNISOLONE [Concomitant]
     Active Substance: PREDNISOLONE
  29. PREDNISOLONE [Concomitant]
     Active Substance: PREDNISOLONE
  30. LANSOPRAZOLE [Concomitant]
     Active Substance: LANSOPRAZOLE
     Indication: Prophylaxis
  31. Mecolamin [Concomitant]
     Indication: Prophylaxis
  32. PREGABALIN [Concomitant]
     Active Substance: PREGABALIN
     Indication: Polyarteritis nodosa
  33. PRAVASTATIN SODIUM [Concomitant]
     Active Substance: PRAVASTATIN SODIUM
     Indication: Dyslipidaemia
  34. MIROGABALIN BESYLATE [Concomitant]
     Active Substance: MIROGABALIN BESYLATE
     Indication: Otitis media chronic
  35. VALPROATE SODIUM [Concomitant]
     Active Substance: VALPROATE SODIUM
     Indication: Otitis media chronic

REACTIONS (3)
  - Completed suicide [Fatal]
  - Cerebral infarction [Recovered/Resolved]
  - Dysphonia [Recovering/Resolving]
